FAERS Safety Report 18209294 (Version 1)
Quarter: 2020Q3

REPORT INFORMATION
  Report Type: Spontaneous
  Country: US (occurrence: US)
  Receive Date: 20200828
  Receipt Date: 20200828
  Transmission Date: 20201103
  Serious: Yes (Other)
  Sender: FDA-Public Use
  Company Number: US-VERTEX PHARMACEUTICALS-2020-017117

PATIENT
  Age: 58 Year
  Sex: Female
  Weight: 51 kg

DRUGS (3)
  1. ROSUVASTATIN. [Suspect]
     Active Substance: ROSUVASTATIN
     Indication: ASPARTATE AMINOTRANSFERASE INCREASED
     Dosage: 10 MG
     Route: 048
     Dates: start: 202005
  2. TRIKAFTA [Suspect]
     Active Substance: ELEXACAFTOR\IVACAFTOR\TEZACAFTOR
     Indication: CYSTIC FIBROSIS
     Dosage: 2 TABS (100MG ELEXA/ 50MG TEZA /IVA 75MG IVA)AM; 1 TAB (150MG IVA) PM
     Route: 048
  3. ROSUVASTATIN. [Suspect]
     Active Substance: ROSUVASTATIN
     Indication: ALANINE AMINOTRANSFERASE INCREASED
     Dosage: 5 MG
     Route: 048
     Dates: start: 202008

REACTIONS (6)
  - Pulmonary hypertension [Not Recovered/Not Resolved]
  - Aspartate aminotransferase increased [Not Recovered/Not Resolved]
  - Drug interaction [Not Recovered/Not Resolved]
  - Alanine aminotransferase increased [Not Recovered/Not Resolved]
  - Presyncope [Recovered/Resolved]
  - Oedema peripheral [Recovered/Resolved]

NARRATIVE: CASE EVENT DATE: 2020
